FAERS Safety Report 16087845 (Version 2)
Quarter: 2019Q2

REPORT INFORMATION
  Report Type: Spontaneous
  Country: DE (occurrence: DE)
  Receive Date: 20190319
  Receipt Date: 20190403
  Transmission Date: 20190711
  Serious: Yes (Death, Life-Threatening, Other)
  Sender: FDA-Public Use
  Company Number: DE-ALKEM LABORATORIES LIMITED-DE-ALKEM-2019-02478

PATIENT
  Age: 80 Year
  Sex: Female
  Weight: 59 kg

DRUGS (3)
  1. QUETIAPINE FUMARATE. [Suspect]
     Active Substance: QUETIAPINE FUMARATE
     Indication: DEPRESSION
  2. CITALOPRAM [Suspect]
     Active Substance: CITALOPRAM HYDROBROMIDE
     Indication: RESTLESSNESS
     Dosage: 10 MG,  FILM-COATED TABLET
     Route: 048
     Dates: start: 20190201, end: 20190220
  3. QUETIAPINE FUMARATE. [Suspect]
     Active Substance: QUETIAPINE FUMARATE
     Indication: RESTLESSNESS
     Dosage: 25 MG, FILM-COATED TABLET
     Route: 048
     Dates: start: 20190201, end: 20190220

REACTIONS (5)
  - Renal failure [Fatal]
  - Jaundice [Unknown]
  - Hepatic failure [Fatal]
  - Hepatitis [Fatal]
  - Disturbance in attention [Unknown]

NARRATIVE: CASE EVENT DATE: 20190211
